FAERS Safety Report 6237164-3 (Version None)
Quarter: 2009Q2

REPORT INFORMATION
  Report Type: 
  Country: None (occurrence: None)
  Receive Date: 20090619
  Receipt Date: 20090507
  Transmission Date: 20091009
  Serious: No
  Sender: FDA-Public Use
  Company Number: US-ASTRAZENECA-2009UW11719

PATIENT
  Age: 6915 Day
  Sex: Female
  Weight: 56.7 kg

DRUGS (5)
  1. SYMBICORT [Suspect]
     Indication: ASTHMA
     Dosage: 160 UG 2 PUFFS TWO TIMES A DAY
     Route: 055
     Dates: start: 20070101
  2. ALBUTEROL [Concomitant]
  3. DUONEB [Concomitant]
  4. QVAR 40 [Concomitant]
  5. OMEPRAZOLE [Concomitant]

REACTIONS (1)
  - DYSPNOEA [None]
